FAERS Safety Report 24292622 (Version 1)
Quarter: 2024Q3

REPORT INFORMATION
  Report Type: Spontaneous
  Country: US (occurrence: US)
  Receive Date: 20240906
  Receipt Date: 20240906
  Transmission Date: 20241016
  Serious: No
  Sender: BRISTOL MYERS SQUIBB
  Company Number: US-BRISTOL-MYERS SQUIBB COMPANY-2024-142127

PATIENT
  Age: 85 Year
  Sex: Female
  Weight: 66.22 kg

DRUGS (1)
  1. REVLIMID [Suspect]
     Active Substance: LENALIDOMIDE
     Indication: B-cell lymphoma
     Dosage: FREQUENCY:7D ON 7D OFF EVERY 28 DAYS.
     Route: 048
     Dates: start: 20240501

REACTIONS (5)
  - Decreased appetite [Not Recovered/Not Resolved]
  - Fatigue [Not Recovered/Not Resolved]
  - COVID-19 [Not Recovered/Not Resolved]
  - Off label use [Unknown]
  - Weight decreased [Not Recovered/Not Resolved]
